FAERS Safety Report 4951642-6 (Version None)
Quarter: 2006Q1

REPORT INFORMATION
  Report Type: 
  Country: None (occurrence: None)
  Receive Date: 20060322
  Receipt Date: 20060322
  Transmission Date: 20060701
  Serious: Yes (Life-Threatening, Hospitalization, Disabling)
  Sender: FDA-Public Use
  Company Number: None

PATIENT
  Age: 87 Year
  Sex: Female
  Weight: 60.3284 kg

DRUGS (1)
  1. TEQUIN [Suspect]
     Indication: SKIN INFECTION
     Dosage: 400 MG 1 DAILY
     Dates: start: 20060221, end: 20060303

REACTIONS (18)
  - ABNORMAL BEHAVIOUR [None]
  - ABNORMAL DREAMS [None]
  - AGITATION [None]
  - ASTHENIA [None]
  - COMMUNICATION DISORDER [None]
  - CONFUSIONAL STATE [None]
  - DIABETES MELLITUS [None]
  - DIABETIC COMA [None]
  - DISORIENTATION [None]
  - DYSARTHRIA [None]
  - FALL [None]
  - HALLUCINATION [None]
  - HALLUCINATION, VISUAL [None]
  - INSOMNIA [None]
  - MENTAL STATUS CHANGES [None]
  - STOMATITIS [None]
  - TINNITUS [None]
  - TREMOR [None]
